FAERS Safety Report 19259847 (Version 4)
Quarter: 2024Q4

REPORT INFORMATION
  Report Type: Report from Study
  Country: US (occurrence: US)
  Receive Date: 20210514
  Receipt Date: 20241216
  Transmission Date: 20250114
  Serious: Yes (Death, Hospitalization, Other)
  Sender: TAKEDA
  Company Number: US-TAKEDA-US202015581

PATIENT
  Age: 77 Year
  Sex: Male
  Weight: 83.9 kg

DRUGS (38)
  1. VELAGLUCERASE ALFA [Suspect]
     Active Substance: VELAGLUCERASE ALFA
     Indication: Gaucher^s disease
     Dosage: 35 INTERNATIONAL UNIT/KILOGRAM, 1X/2WKS (EVERY 2 WEEKS)
     Dates: start: 20080606
  2. ERTAPENEM [Concomitant]
     Active Substance: ERTAPENEM
     Indication: Antibiotic therapy
  3. SODIUM CHLORIDE [Concomitant]
     Active Substance: SODIUM CHLORIDE
     Indication: Prophylaxis
     Dosage: UNK
  4. NYSTATIN [Concomitant]
     Active Substance: NYSTATIN
     Indication: Antibiotic prophylaxis
     Dosage: UNK, BID
     Route: 061
     Dates: start: 20200425, end: 20200428
  5. ACETAMINOPHEN [Concomitant]
     Active Substance: ACETAMINOPHEN
     Indication: Pain
  6. ALLOPURINOL [Concomitant]
     Active Substance: ALLOPURINOL
     Indication: Gout
     Dosage: 100 MILLIGRAM, QD
     Dates: start: 20040715
  7. NIACIN [Concomitant]
     Active Substance: NIACIN
     Dosage: UNK UNK, QD
     Dates: start: 20091106, end: 20091109
  8. ATENOLOL [Concomitant]
     Active Substance: ATENOLOL
     Indication: Hypertension
     Dosage: 50 MILLIGRAM, BID
     Dates: start: 20100503
  9. BUPROPION [Concomitant]
     Active Substance: BUPROPION
     Indication: Depression
     Dosage: 300 MILLIGRAM, QD
     Dates: start: 20101208, end: 20190611
  10. DOCUSATE SODIUM [Concomitant]
     Active Substance: DOCUSATE SODIUM
     Indication: Constipation
     Dosage: UNK
  11. POTASSIUM CHLORIDE [Concomitant]
     Active Substance: POTASSIUM CHLORIDE
     Indication: Arrhythmia
     Dosage: UNK UNK, QD
     Dates: start: 20110613, end: 20130731
  12. NAPROXEN SODIUM [Concomitant]
     Active Substance: NAPROXEN SODIUM
     Indication: Arthralgia
     Dosage: UNK UNK, BID
     Dates: start: 20120121, end: 20130813
  13. SIMVASTATIN [Concomitant]
     Active Substance: SIMVASTATIN
     Indication: Hypercholesterolaemia
     Dosage: 20 MILLIGRAM, QD
     Dates: start: 20120810, end: 20190221
  14. ASPIRIN [Concomitant]
     Active Substance: ASPIRIN
     Indication: Prophylaxis
     Dosage: UNK UNK, QD
     Dates: start: 20120821, end: 20180113
  15. LISINOPRIL [Concomitant]
     Active Substance: LISINOPRIL
     Indication: Hypertension
     Dosage: UNK UNK, QD
     Dates: start: 20120831, end: 20130731
  16. LISINOPRIL AND HYDROCHLOROTHIAZIDE [Concomitant]
     Active Substance: HYDROCHLOROTHIAZIDE\LISINOPRIL
     Indication: Hypertension
     Dosage: UNK UNK, QD
     Dates: start: 20120831, end: 201307
  17. TRAZODONE [Concomitant]
     Active Substance: TRAZODONE HYDROCHLORIDE
     Indication: Insomnia
     Dosage: 100 MILLIGRAM
  18. LEVITRA [Concomitant]
     Active Substance: VARDENAFIL HYDROCHLORIDE
     Indication: Erectile dysfunction
     Dosage: UNK UNK, QD
     Dates: start: 20130108, end: 201311
  19. LOSARTAN [Concomitant]
     Active Substance: LOSARTAN
     Indication: Hypertension
     Dosage: 25 MILLIGRAM, QD
     Dates: start: 20130731, end: 20130814
  20. LOSARTAN [Concomitant]
     Active Substance: LOSARTAN
     Dosage: 50 MILLIGRAM, BID
     Dates: start: 20130814
  21. AMLODIPINE [Concomitant]
     Active Substance: AMLODIPINE BESYLATE
     Indication: Hypertension
     Dosage: UNK UNK, BID
     Dates: start: 20130819
  22. SILDENAFIL [Concomitant]
     Active Substance: SILDENAFIL
     Indication: Erectile dysfunction
     Dosage: UNK
     Dates: start: 20131120, end: 20190611
  23. MUPIROCIN [Concomitant]
     Active Substance: MUPIROCIN
     Indication: Skin ulcer
     Dosage: UNK
     Route: 061
  24. DESMOPRESSIN [Concomitant]
     Active Substance: DESMOPRESSIN
     Indication: Prophylaxis
     Dosage: UNK UNK, SINGLE
     Dates: start: 20140528, end: 20140528
  25. AMOXICILLIN [Concomitant]
     Active Substance: AMOXICILLIN
     Indication: Antibiotic therapy
     Dosage: UNK
  26. AMOXICILLIN [Concomitant]
     Active Substance: AMOXICILLIN
     Dosage: UNK
     Dates: start: 20150811, end: 20150830
  27. PIMECROLIMUS [Concomitant]
     Active Substance: PIMECROLIMUS
     Indication: Seborrhoeic dermatitis
     Dosage: UNK UNK, BID
     Route: 061
     Dates: start: 20161004, end: 20180112
  28. SINEMET [Concomitant]
     Active Substance: CARBIDOPA\LEVODOPA
     Indication: Tremor
     Dosage: UNK UNK, TID
     Dates: start: 20190117
  29. ROSUVASTATIN [Concomitant]
     Active Substance: ROSUVASTATIN
     Indication: Type 2 diabetes mellitus
     Dosage: UNK UNK, QD
     Dates: start: 20190221
  30. FLOMAX [Concomitant]
     Active Substance: TAMSULOSIN HYDROCHLORIDE
     Indication: Urinary retention
     Dosage: UNK UNK, QD
     Dates: start: 20190311
  31. FOSAMAX PLUS D [Concomitant]
     Active Substance: ALENDRONATE SODIUM\CHOLECALCIFEROL
     Indication: Osteopenia
     Dosage: UNK UNK, 1/WEEK
     Dates: start: 20190703, end: 20200408
  32. TYLENOL [Concomitant]
     Active Substance: ACETAMINOPHEN
     Indication: Pain in extremity
     Dosage: UNK
  33. CITALOPRAM [Concomitant]
     Active Substance: CITALOPRAM
     Indication: Depression
     Dosage: 10 MILLIGRAM, QD
     Dates: start: 20191121
  34. METFORMIN [Concomitant]
     Active Substance: METFORMIN HYDROCHLORIDE
     Indication: Type 2 diabetes mellitus
     Dosage: 500 MILLIGRAM, BID
     Dates: start: 20200115, end: 20200402
  35. MAGNESIUM HYDROXIDE [Concomitant]
     Active Substance: MAGNESIUM HYDROXIDE
     Indication: Constipation
     Dosage: 5 MILLILITER, QD
     Dates: start: 20200311
  36. FENOFIBRATE [Concomitant]
     Active Substance: FENOFIBRATE
     Indication: Type 2 diabetes mellitus
     Dosage: 54 MILLIGRAM, QD
     Dates: start: 20200317, end: 20200319
  37. HYDROCORTISONE [Concomitant]
     Active Substance: HYDROCORTISONE
     Indication: Dermatitis
     Dosage: 1 PERCENT, QID
     Route: 061
     Dates: start: 20200417
  38. BACITRACIN AND POLYMYXIN B SULFATE [Concomitant]
     Active Substance: BACITRACIN\POLYMYXIN B SULFATE
     Indication: Prophylaxis
     Dosage: UNK UNK, TID
     Route: 061
     Dates: start: 20200424, end: 20200428

REACTIONS (3)
  - COVID-19 [Fatal]
  - Acute respiratory failure [Fatal]
  - Urinary tract infection [Recovered/Resolved]

NARRATIVE: CASE EVENT DATE: 20200123
